FAERS Safety Report 13042262 (Version 4)
Quarter: 2017Q4

REPORT INFORMATION
  Report Type: Spontaneous
  Country: US (occurrence: US)
  Receive Date: 20161219
  Receipt Date: 20171205
  Transmission Date: 20180320
  Serious: Yes (Other)
  Sender: FDA-Public Use
  Company Number: US-JNJFOC-20161212022

PATIENT
  Sex: Male
  Weight: 74.84 kg

DRUGS (9)
  1. LEVAQUIN [Suspect]
     Active Substance: LEVOFLOXACIN
     Indication: CHLAMYDIAL INFECTION
     Dosage: DOSE: 250 MG AND 500 MG
     Route: 048
     Dates: start: 2009, end: 2009
  2. LEVAQUIN [Suspect]
     Active Substance: LEVOFLOXACIN
     Indication: CHLAMYDIAL INFECTION
     Dosage: 3 TABLETS OF 500 MG
     Route: 048
  3. AZITHROMYCIN ANHYDROUS. [Suspect]
     Active Substance: AZITHROMYCIN ANHYDROUS
     Indication: CHLAMYDIAL INFECTION
     Route: 065
  4. LEVAQUIN [Suspect]
     Active Substance: LEVOFLOXACIN
     Indication: CHLAMYDIAL INFECTION
     Route: 048
     Dates: start: 2009
  5. TETRACYCLINE [Suspect]
     Active Substance: TETRACYCLINE
     Indication: CHLAMYDIAL INFECTION
     Route: 065
     Dates: start: 2009
  6. LEVAQUIN [Suspect]
     Active Substance: LEVOFLOXACIN
     Indication: CHLAMYDIAL INFECTION
     Route: 048
     Dates: start: 200904
  7. AZITHROMYCIN ANHYDROUS. [Suspect]
     Active Substance: AZITHROMYCIN ANHYDROUS
     Indication: CHLAMYDIAL INFECTION
     Dosage: FOR 3 DAYS
     Route: 065
     Dates: start: 200902
  8. AZITHROMYCIN ANHYDROUS. [Suspect]
     Active Substance: AZITHROMYCIN ANHYDROUS
     Indication: CHLAMYDIAL INFECTION
     Dosage: 3 OF 500 MG UP TO 40 DAYS
     Route: 065
     Dates: start: 2009
  9. DOXYCYCLINE. [Suspect]
     Active Substance: DOXYCYCLINE
     Indication: CHLAMYDIAL INFECTION
     Route: 065
     Dates: start: 2009, end: 2009

REACTIONS (10)
  - Drug dependence [Unknown]
  - Skin fissures [Recovered/Resolved]
  - Drug ineffective for unapproved indication [Not Recovered/Not Resolved]
  - Lymphoedema [Not Recovered/Not Resolved]
  - Drug prescribing error [Unknown]
  - Erythema [Recovered/Resolved]
  - Dislocation of vertebra [Recovered/Resolved]
  - Off label use [Unknown]
  - Product use in unapproved indication [Unknown]
  - Overdose [Unknown]

NARRATIVE: CASE EVENT DATE: 2009
